FAERS Safety Report 16598233 (Version 1)
Quarter: 2019Q3

REPORT INFORMATION
  Report Type: Spontaneous
  Country: DE (occurrence: DE)
  Receive Date: 20190719
  Receipt Date: 20190719
  Transmission Date: 20191004
  Serious: Yes (Hospitalization)
  Sender: FDA-Public Use
  Company Number: DE-PFIZER INC-2019302318

PATIENT
  Age: 54 Year
  Sex: Female
  Weight: 91.4 kg

DRUGS (7)
  1. LOPERAMID [Concomitant]
     Active Substance: LOPERAMIDE
     Dosage: 2 MG, AS NEEDED
     Route: 048
  2. PACLITAXEL. [Suspect]
     Active Substance: PACLITAXEL
     Dosage: UNK MG/KG KG
     Route: 042
     Dates: end: 20171211
  3. GEMCITABINE HYDROCHLORIDE. [Suspect]
     Active Substance: GEMCITABINE HYDROCHLORIDE
     Dosage: UNK MG/KG KG
     Route: 042
  4. KREON 25000 [Concomitant]
     Active Substance: PANCRELIPASE
     Dosage: 300 MG, 3X/DAY (300 MG, 1-1-1-0, CAPSULES)
     Route: 048
  5. ONDANSETRON [Concomitant]
     Active Substance: ONDANSETRON
     Dosage: 8 MG, 2X/DAY (8 MG, 1-0-1-0, TABLET)
     Route: 048
  6. PANTOPRAZOLE [Concomitant]
     Active Substance: PANTOPRAZOLE
     Dosage: 40 MG, 1X/DAY (40 MG, 1-0-0-0, TABLET)
     Route: 048
  7. ELIQUIS [Concomitant]
     Active Substance: APIXABAN
     Dosage: 5 MG, 2X/DAY (5 MG, 1-0-1-0, TABLET)
     Route: 048

REACTIONS (3)
  - Vomiting [Unknown]
  - Nausea [Unknown]
  - Tachycardia [Unknown]
